FAERS Safety Report 15814318 (Version 1)
Quarter: 2019Q1

REPORT INFORMATION
  Report Type: Report from Study
  Country: None (occurrence: JP)
  Receive Date: 20190111
  Receipt Date: 20190111
  Transmission Date: 20190417
  Serious: Yes (Hospitalization)
  Sender: FDA-Public Use
  Company Number: JP-ABBVIE-19P-087-2615063-00

PATIENT
  Age: 71 Year
  Sex: Male
  Weight: 59 kg

DRUGS (16)
  1. VENETOCLAX. [Suspect]
     Active Substance: VENETOCLAX
     Dosage: CYCLE = 28 DAYS
     Route: 048
     Dates: start: 20180626, end: 20180626
  2. VENETOCLAX. [Suspect]
     Active Substance: VENETOCLAX
     Dosage: CYCLE = 28 DAYS
     Route: 048
     Dates: start: 20180809, end: 20180824
  3. VENETOCLAX. [Suspect]
     Active Substance: VENETOCLAX
     Dosage: CYCLE = 28 DAYS
     Route: 048
     Dates: start: 20180825, end: 20181105
  4. AZACITIDINE. [Suspect]
     Active Substance: AZACITIDINE
     Indication: ACUTE MYELOID LEUKAEMIA
     Dosage: DAYS 1-7 OF 28 DAY CYCLE
     Route: 042
     Dates: start: 20180625, end: 20181213
  5. SODIUM CHLORIDE. [Concomitant]
     Active Substance: SODIUM CHLORIDE
     Indication: PROPHYLAXIS
     Route: 042
     Dates: start: 20180624, end: 20180624
  6. VENETOCLAX. [Suspect]
     Active Substance: VENETOCLAX
     Dosage: CYCLE = 28 DAYS
     Route: 048
     Dates: start: 20180627, end: 20180722
  7. BAKTAR [Concomitant]
     Active Substance: SULFAMETHOXAZOLE\TRIMETHOPRIM
     Indication: INFECTION PROPHYLAXIS
     Route: 048
     Dates: start: 20180625
  8. TSUKUSHIAM COMBINATION POWDER [Concomitant]
     Indication: GASTRITIS
     Dates: start: 20180703
  9. VENETOCLAX. [Suspect]
     Active Substance: VENETOCLAX
     Indication: ACUTE MYELOID LEUKAEMIA
     Dosage: CYCLE = 28 DAYS
     Route: 048
     Dates: start: 20180625, end: 20180625
  10. SODIUM CHLORIDE. [Concomitant]
     Active Substance: SODIUM CHLORIDE
     Route: 042
     Dates: start: 20180630, end: 20180702
  11. VENETOCLAX. [Suspect]
     Active Substance: VENETOCLAX
     Dosage: CYCLE = 28 DAYS
     Route: 048
     Dates: start: 20181207, end: 20190103
  12. FEBUXOSTAT. [Concomitant]
     Active Substance: FEBUXOSTAT
     Indication: PROPHYLAXIS
     Route: 048
     Dates: start: 20180624, end: 20180628
  13. FEBUXOSTAT. [Concomitant]
     Active Substance: FEBUXOSTAT
     Route: 048
     Dates: start: 20180629, end: 20180703
  14. SODIUM CHLORIDE. [Concomitant]
     Active Substance: SODIUM CHLORIDE
     Route: 042
     Dates: start: 20180625, end: 20180629
  15. ESOMEPRAZOLE. [Concomitant]
     Active Substance: ESOMEPRAZOLE MAGNESIUM
     Indication: GASTRITIS
     Route: 048
     Dates: start: 20180624
  16. DEQUALINIUM CHLORIDE [Concomitant]
     Active Substance: DEQUALINIUM CHLORIDE
     Indication: PHARYNGITIS
     Route: 049
     Dates: start: 20181207

REACTIONS (1)
  - Sepsis [Not Recovered/Not Resolved]

NARRATIVE: CASE EVENT DATE: 20190106
